FAERS Safety Report 9350648 (Version 1)
Quarter: 2013Q2

REPORT INFORMATION
  Report Type: Report from Study
  Country: GB (occurrence: GB)
  Receive Date: 20130617
  Receipt Date: 20130617
  Transmission Date: 20140414
  Serious: Yes (Death)
  Sender: FDA-Public Use
  Company Number: GB-GENZYME-CAMP-1002695

PATIENT
  Sex: 0

DRUGS (10)
  1. CAMPATH [Suspect]
     Indication: CHRONIC LYMPHOCYTIC LEUKAEMIA
     Dosage: UNK; THREE TIMES A WEEK FOR 16 WEEKS (FOR FIRST 4 WEEKS)
     Route: 042
  2. CAMPATH [Suspect]
     Dosage: UNK; THREE TIMES A WEEK FOR 16 WEEKS (AFTER FIRST 4 WEEKS)
     Route: 058
  3. METHYLPREDNISOLONE [Suspect]
     Indication: CHRONIC LYMPHOCYTIC LEUKAEMIA
     Dosage: 1 G/M2, QD, FOR FIVE CONSECUTIVE DAYS REPEATED AFTER 28 DAYS FOR 4 CYCLE
     Route: 065
  4. PARACETAMOL [Concomitant]
     Indication: PREMEDICATION
     Dosage: UNK
     Route: 065
  5. CHLORPHENAMINE [Concomitant]
     Indication: PREMEDICATION
     Dosage: UNK
     Route: 065
  6. COTRIMOXAZOLE [Concomitant]
     Indication: INFECTION PROPHYLAXIS
     Dosage: UNK
     Route: 065
  7. ACYCLOVIR [Concomitant]
     Indication: INFECTION PROPHYLAXIS
     Dosage: UNK
     Route: 065
  8. ITRACONAZOLE [Concomitant]
     Indication: INFECTION PROPHYLAXIS
     Dosage: UNK
     Route: 065
  9. ALLOPURINOL [Concomitant]
     Indication: PRODUCT USED FOR UNKNOWN INDICATION
     Dosage: UNK
     Route: 065
  10. LANSOPRAZOLE [Concomitant]
     Indication: PRODUCT USED FOR UNKNOWN INDICATION
     Dosage: UNK
     Route: 065

REACTIONS (2)
  - Haemorrhage intracranial [Fatal]
  - Thrombocytopenia [Fatal]
